FAERS Safety Report 6647242-2 (Version None)
Quarter: 2010Q1

REPORT INFORMATION
  Report Type: 
  Country: None (occurrence: None)
  Receive Date: 20100323
  Receipt Date: 20100315
  Transmission Date: 20100710
  Serious: Yes (Hospitalization)
  Sender: FDA-Public Use
  Company Number: A0850227A

PATIENT
  Age: 54 Year
  Sex: Male

DRUGS (3)
  1. AVANDIA [Suspect]
     Route: 048
     Dates: start: 20080101, end: 20090101
  2. METFORMIN HCL [Concomitant]
  3. GLUCOTROL [Concomitant]

REACTIONS (1)
  - CEREBROVASCULAR ACCIDENT [None]
